FAERS Safety Report 16211528 (Version 5)
Quarter: 2019Q4

REPORT INFORMATION
  Report Type: Report from Study
  Country: US (occurrence: US)
  Receive Date: 20190418
  Receipt Date: 20191107
  Transmission Date: 20200122
  Serious: Yes (Life-Threatening, Hospitalization)
  Sender: FDA-Public Use
  Company Number: US-ROCHE-2305100

PATIENT
  Age: 49 Year
  Sex: Female

DRUGS (28)
  1. RITUXIMAB. [Suspect]
     Active Substance: RITUXIMAB
     Indication: RICHTER^S SYNDROME
     Dosage: ADJUSTED PER PROTOCOL
     Route: 042
  2. CYCLOPHOSPHAMIDE. [Suspect]
     Active Substance: CYCLOPHOSPHAMIDE
     Indication: RICHTER^S SYNDROME
     Route: 042
  3. ZOVIRAX [Concomitant]
     Active Substance: ACYCLOVIR
  4. LEVAQUIN [Concomitant]
     Active Substance: LEVOFLOXACIN
  5. SEPTRA [Concomitant]
     Active Substance: SULFAMETHOXAZOLE\TRIMETHOPRIM
  6. CLARITIN [Concomitant]
     Active Substance: LORATADINE
  7. PRILOSEC [Concomitant]
     Active Substance: OMEPRAZOLE MAGNESIUM
  8. PREDNISONE. [Suspect]
     Active Substance: PREDNISONE
     Indication: RICHTER^S SYNDROME
     Route: 042
  9. DOXORUBICIN HYDROCHLORIDE. [Suspect]
     Active Substance: DOXORUBICIN HYDROCHLORIDE
     Indication: RICHTER^S SYNDROME
     Route: 042
  10. PERIDEX [CHLORHEXIDINE GLUCONATE] [Concomitant]
  11. COLACE [Concomitant]
     Active Substance: DOCUSATE SODIUM
  12. FERROUS SULFATE. [Concomitant]
     Active Substance: FERROUS SULFATE
  13. VENETOCLAX. [Suspect]
     Active Substance: VENETOCLAX
     Indication: RICHTER^S SYNDROME
     Route: 048
  14. MYCELEX TROCHE [Concomitant]
  15. POTASSIUM CHLORIDE. [Concomitant]
     Active Substance: POTASSIUM CHLORIDE
  16. DELTASONE [Concomitant]
     Active Substance: PREDNISONE
  17. FAMOTIDINE. [Concomitant]
     Active Substance: FAMOTIDINE
  18. ETOPOSIDE PHOSPHATE [Suspect]
     Active Substance: ETOPOSIDE PHOSPHATE
     Indication: RICHTER^S SYNDROME
     Route: 042
  19. PROCHLORPERAZINE. [Concomitant]
     Active Substance: PROCHLORPERAZINE
  20. VINCRISTINE SULFATE. [Suspect]
     Active Substance: VINCRISTINE SULFATE
     Indication: RICHTER^S SYNDROME
     Route: 042
  21. ZYLOPRIM [Concomitant]
     Active Substance: ALLOPURINOL
  22. CALTRATE WITH VITAMIN D [Concomitant]
     Active Substance: CALCIUM CARBONATE\CHOLECALCIFEROL
  23. LEVEMIR [Concomitant]
     Active Substance: INSULIN DETEMIR
  24. ADMELOG [Concomitant]
     Active Substance: INSULIN LISPRO
  25. MIRALAX [Concomitant]
     Active Substance: POLYETHYLENE GLYCOL 3350
  26. SENOKOT [Concomitant]
     Active Substance: SENNOSIDES
  27. PARACETAMOL [Concomitant]
     Active Substance: ACETAMINOPHEN
  28. BACTRIM [Concomitant]
     Active Substance: SULFAMETHOXAZOLE\TRIMETHOPRIM

REACTIONS (24)
  - Tenderness [Unknown]
  - Enteritis infectious [Unknown]
  - Oedema mucosal [Unknown]
  - Pancytopenia [Unknown]
  - Hypokalaemia [Unknown]
  - Abdominal pain [Recovering/Resolving]
  - Sepsis [Unknown]
  - Duodenitis [Unknown]
  - Mucosal inflammation [Unknown]
  - Febrile neutropenia [Unknown]
  - Fatigue [Unknown]
  - Haemoglobin decreased [Unknown]
  - White blood cell count increased [Unknown]
  - Herpes simplex [Unknown]
  - Enteritis [Unknown]
  - Dysphagia [Unknown]
  - Diarrhoea [Unknown]
  - Platelet count decreased [Unknown]
  - Pyrexia [Unknown]
  - Stomatitis [Unknown]
  - Enterocolitis [Unknown]
  - Rash pustular [Unknown]
  - Pancytopenia [Unknown]
  - Delirium [Unknown]

NARRATIVE: CASE EVENT DATE: 20190409
